FAERS Safety Report 6649783-0 (Version None)
Quarter: 2010Q1

REPORT INFORMATION
  Report Type: 
  Country: None (occurrence: None)
  Receive Date: 20100322
  Receipt Date: 20100309
  Transmission Date: 20100710
  Serious: Yes (Hospitalization)
  Sender: FDA-Public Use
  Company Number: 231533J10USA

PATIENT
  Age: 59 Year
  Sex: Female
  Weight: 60 kg

DRUGS (21)
  1. REBIF [Suspect]
     Indication: MULTIPLE SCLEROSIS
     Dosage: 44 MCG, 3 IN 1 WEEKS, SUBCUTANEOUS
     Route: 058
     Dates: start: 20091001, end: 20100108
  2. CLEARADIN (ALL OTHER THERAPEUTIC PRODUCTS) [Concomitant]
  3. DOCUSATE (DOCUSATE) [Concomitant]
  4. DOCOLACE (ALL OTHER THERAPEUTIC PRODUCTS) [Concomitant]
  5. LISINOPRIL [Concomitant]
  6. CALCIUM/D(VITACAL /01535001/) [Concomitant]
  7. LEVOTHYROXINE SODIUM [Concomitant]
  8. POTASSIUM (POTASSIUM) [Concomitant]
  9. CONSTULOSE (ALL OTHER THERAPEUTIC PRODUCTS) [Concomitant]
  10. SIMETHICONE (DIMETICONE, ACTIVATED) [Concomitant]
  11. PLAVIX [Concomitant]
  12. GABAPENTIN [Concomitant]
  13. BISAC EVAC (BISACODYL) [Concomitant]
  14. LACTULOSE [Concomitant]
  15. ALENDRONATE SODIUM [Concomitant]
  16. AMBIEN [Concomitant]
  17. BACLOFEN [Concomitant]
  18. MIRAPEX [Concomitant]
  19. DESMOPRESSIN ACETATE [Concomitant]
  20. SULFAMETHOXAZOLE AND TRIMETHOPRIM [Concomitant]
  21. OXYBUTYNIN CHLORIDE [Concomitant]

REACTIONS (7)
  - ABNORMAL DREAMS [None]
  - CONFUSIONAL STATE [None]
  - CYSTITIS [None]
  - DELIRIUM [None]
  - HYPOCALCAEMIA [None]
  - INSOMNIA [None]
  - SEPSIS [None]
